FAERS Safety Report 4343160-3 (Version None)
Quarter: 2004Q2

REPORT INFORMATION
  Report Type: 
  Country: None (occurrence: None)
  Receive Date: 20040416
  Receipt Date: 20040409
  Transmission Date: 20050107
  Serious: Yes (Other)
  Sender: FDA-Public Use
  Company Number: US-JNJFOC-20040306784

PATIENT
  Age: 73 Year
  Sex: Male

DRUGS (16)
  1. NATRECOR [Suspect]
     Indication: CARDIAC FAILURE CONGESTIVE
     Dosage: SEE IMAGE
     Route: 042
     Dates: start: 20031119, end: 20031122
  2. NATRECOR [Suspect]
     Indication: CARDIAC FAILURE CONGESTIVE
     Dosage: SEE IMAGE
     Route: 042
     Dates: start: 20031119, end: 20031122
  3. NATRECOR [Suspect]
     Indication: CARDIAC FAILURE CONGESTIVE
     Dosage: SEE IMAGE
     Route: 042
     Dates: start: 20040119
  4. NATRECOR [Suspect]
     Indication: CARDIAC FAILURE CONGESTIVE
     Dosage: SEE IMAGE
     Route: 042
     Dates: start: 20040119
  5. ASPIRIN [Concomitant]
  6. COZAAR [Concomitant]
  7. COREG [Concomitant]
  8. ZOLOFT [Concomitant]
  9. ZOCOR [Concomitant]
  10. LASIX [Concomitant]
  11. METOLAZONE [Concomitant]
  12. DIGOXIN [Concomitant]
  13. SYNTHROID [Concomitant]
  14. FOLIC ACID [Concomitant]
  15. NOVOLOG (ALL OTHER THERAPEUTIC PRODUCTS) [Concomitant]
  16. NPH INSULIN [Concomitant]

REACTIONS (7)
  - CONDITION AGGRAVATED [None]
  - HAEMATOCRIT DECREASED [None]
  - HAEMOGLOBIN DECREASED [None]
  - IMPLANT SITE HAEMORRHAGE [None]
  - OPERATIVE HAEMORRHAGE [None]
  - PLATELET COUNT DECREASED [None]
  - PROTHROMBIN TIME PROLONGED [None]
